FAERS Safety Report 8400562-3 (Version None)
Quarter: 2012Q2

REPORT INFORMATION
  Report Type: 
  Country: None (occurrence: None)
  Receive Date: 20120531
  Receipt Date: 20120529
  Transmission Date: 20120825
  Serious: Yes (Death, Other)
  Sender: FDA-Public Use
  Company Number: VE-PFIZER INC-2011088820

PATIENT
  Age: 65 Year
  Sex: Male

DRUGS (4)
  1. CARBOPLATIN [Concomitant]
     Indication: CHEMOTHERAPY
     Dosage: UNK, EVERY 3 WEEKS
     Route: 042
  2. COZAAR [Concomitant]
     Indication: HYPERTENSION
     Dosage: 75 MG, 1X/DAY
     Route: 048
     Dates: start: 20000101
  3. ZOLOFT [Suspect]
     Dosage: 50 MG, UNK
  4. LIPITOR [Suspect]
     Indication: HYPERCHOLESTEROLAEMIA
     Dosage: 20 MG, 1X/DAY
     Route: 048
     Dates: end: 20100101

REACTIONS (2)
  - PROSTATE CANCER [None]
  - METASTASES TO BONE [None]
